FAERS Safety Report 6227448-7 (Version None)
Quarter: 2009Q2

REPORT INFORMATION
  Report Type: 
  Country: None (occurrence: None)
  Receive Date: 20090612
  Receipt Date: 20090605
  Transmission Date: 20091009
  Serious: Yes (Other)
  Sender: FDA-Public Use
  Company Number: US-ASTRAZENECA-2009UW07077

PATIENT
  Age: 80 Year
  Sex: Male

DRUGS (2)
  1. CRESTOR [Suspect]
     Route: 048
     Dates: end: 20090309
  2. CRESTOR [Suspect]
     Route: 048
     Dates: start: 20070301

REACTIONS (11)
  - ABDOMINAL PAIN [None]
  - ASTHENIA [None]
  - BLOOD GLUCOSE INCREASED [None]
  - CONSTIPATION [None]
  - DISTURBANCE IN ATTENTION [None]
  - HYPERPALLAESTHESIA [None]
  - MUSCLE SPASMS [None]
  - PAIN [None]
  - REFUSAL OF TREATMENT BY PATIENT [None]
  - SCOLIOSIS [None]
  - SLEEP DISORDER [None]
